FAERS Safety Report 20568093 (Version 2)
Quarter: 2022Q2

REPORT INFORMATION
  Report Type: Spontaneous
  Country: PL (occurrence: PL)
  Receive Date: 20220308
  Receipt Date: 20220523
  Transmission Date: 20220721
  Serious: Yes (Other)
  Sender: FDA-Public Use
  Company Number: PL-EGIS-HUN-2021-1248

PATIENT
  Age: 31 Year
  Sex: Male

DRUGS (2)
  1. ARIPIPRAZOLE [Suspect]
     Active Substance: ARIPIPRAZOLE
     Indication: Schizophrenia
     Dosage: 15 MG DAILY
     Route: 065
     Dates: start: 2016
  2. AMANTADINE [Suspect]
     Active Substance: AMANTADINE
     Indication: Libido decreased
     Dosage: 100 MG, QD (IN THE EVENING)
     Route: 065

REACTIONS (4)
  - Male sexual dysfunction [Recovering/Resolving]
  - Disturbance in sexual arousal [Recovering/Resolving]
  - Libido decreased [Recovered/Resolved]
  - Erectile dysfunction [Recovering/Resolving]
